FAERS Safety Report 6808116-7 (Version None)
Quarter: 2010Q2

REPORT INFORMATION
  Report Type: 
  Country: None (occurrence: None)
  Receive Date: 20100629
  Receipt Date: 20090516
  Transmission Date: 20101027
  Serious: No
  Sender: FDA-Public Use
  Company Number: US-PFIZER INC-2009178454

PATIENT
  Sex: Female
  Weight: 81.6 kg

DRUGS (8)
  1. XANAX [Suspect]
     Dosage: 2 MG, 1X/DAY
     Route: 048
  2. AZITHROMYCIN [Suspect]
     Indication: PULMONARY CONGESTION
     Route: 048
     Dates: start: 20090201
  3. AZITHROMYCIN [Suspect]
     Indication: PNEUMONIA
  4. VALIUM [Suspect]
  5. OXYCONTIN [Concomitant]
  6. ZANAFLEX [Concomitant]
  7. ENALAPRIL MALEATE [Concomitant]
  8. RITALIN [Concomitant]

REACTIONS (9)
  - ANXIETY [None]
  - COGNITIVE DISORDER [None]
  - CONFUSIONAL STATE [None]
  - DISORIENTATION [None]
  - DISTURBANCE IN ATTENTION [None]
  - DRUG DOSE OMISSION [None]
  - FEELING ABNORMAL [None]
  - MEMORY IMPAIRMENT [None]
  - TINNITUS [None]
